FAERS Safety Report 5504795-5 (Version None)
Quarter: 2007Q4

REPORT INFORMATION
  Report Type: 
  Country: None (occurrence: None)
  Receive Date: 20071031
  Receipt Date: 20071031
  Transmission Date: 20080405
  Serious: No
  Sender: FDA-Public Use
  Company Number: None

PATIENT
  Age: 40 Year
  Sex: Male

DRUGS (1)
  1. CORTISPORIN [Suspect]
     Dosage: TOPICAL
     Route: 061
     Dates: start: 20071025, end: 20071026

REACTIONS (2)
  - EAR DISCOMFORT [None]
  - EAR PAIN [None]
